FAERS Safety Report 9369668 (Version 2)
Quarter: 2013Q3

REPORT INFORMATION
  Report Type: Spontaneous
  Country: US (occurrence: None)
  Receive Date: 20130621
  Receipt Date: 20130731
  Transmission Date: 20140515
  Serious: Yes (Other)
  Sender: FDA-Public Use
  Company Number: 2013-2554

PATIENT
  Age: 44 Year
  Sex: Female

DRUGS (1)
  1. DYSPORT (BOTULINUM TOXIN TYPE A) (BOTULINUM TOXIN TYPE A) [Suspect]
     Indication: SKIN WRINKLING
     Dosage: 132 UNITS  (1 IN 1 CYCLE (S))
     Dates: start: 20130612, end: 20130612

REACTIONS (4)
  - Urticaria [None]
  - No reaction on previous exposure to drug [None]
  - Periorbital disorder [None]
  - Blood immunoglobulin E increased [None]
